FAERS Safety Report 10484314 (Version 1)
Quarter: 2014Q3

REPORT INFORMATION
  Report Type: Spontaneous
  Country: US (occurrence: US)
  Receive Date: 20140930
  Receipt Date: 20140930
  Transmission Date: 20150326
  Serious: No
  Sender: FDA-Public Use
  Company Number: US-PFIZER INC-2014268039

PATIENT
  Age: 71 Year
  Sex: Female
  Weight: 68.03 kg

DRUGS (1)
  1. LYRICA [Suspect]
     Active Substance: PREGABALIN
     Indication: FIBROMYALGIA
     Dosage: 50 MG, 1X/DAY

REACTIONS (3)
  - Disease progression [Not Recovered/Not Resolved]
  - Weight increased [Unknown]
  - Peripheral swelling [Not Recovered/Not Resolved]
